FAERS Safety Report 12241620 (Version 7)
Quarter: 2024Q1

REPORT INFORMATION
  Report Type: Spontaneous
  Country: ES (occurrence: ES)
  Receive Date: 20160406
  Receipt Date: 20240128
  Transmission Date: 20240409
  Serious: Yes (Life-Threatening, Hospitalization, Other)
  Sender: FDA-Public Use
  Company Number: ES-AUROBINDO-AUR-APL-2016-04242

PATIENT
  Age: 84 Year
  Sex: Male

DRUGS (11)
  1. DONEPEZIL [Interacting]
     Active Substance: DONEPEZIL
     Indication: Product used for unknown indication
     Dosage: 10 MG, ONCE A DAY
     Route: 065
  2. OLANZAPINE [Interacting]
     Active Substance: OLANZAPINE
     Dosage: 2.5 MG, TWO TIMES A DAY
     Route: 065
  3. OLANZAPINE [Interacting]
     Active Substance: OLANZAPINE
     Dosage: 5 MILLIGRAM, ONCE A DAY
     Route: 065
  4. QUETIAPINE [Suspect]
     Active Substance: QUETIAPINE
     Indication: Restlessness
     Dosage: 12.5 MG, TWO TIMES A DAY WITH MEALS
     Route: 065
  5. QUETIAPINE [Suspect]
     Active Substance: QUETIAPINE
     Dosage: 25 MG, UNKNOWN FREQ. (12.5 MG OF FIXED FORM IN THE DINNERS)
     Route: 065
  6. FLOMAX [Suspect]
     Active Substance: TAMSULOSIN HYDROCHLORIDE
     Indication: Product used for unknown indication
     Dosage: 0.4 MILLIGRAM
     Route: 065
  7. CLONAZEPAM [Suspect]
     Active Substance: CLONAZEPAM
     Indication: Product used for unknown indication
     Dosage: 0.13 MILLIGRAM
     Route: 065
  8. CLONAZEPAM [Suspect]
     Active Substance: CLONAZEPAM
     Dosage: 0.13 MG, ONCE DAILY
     Route: 065
  9. CLONAZEPAM [Suspect]
     Active Substance: CLONAZEPAM
     Dosage: 0.125 MILLIGRAM
     Route: 065
  10. SPIRIVA [Suspect]
     Active Substance: TIOTROPIUM BROMIDE MONOHYDRATE
     Indication: Product used for unknown indication
     Dosage: 18 MCG: 1 INH / DAY
     Route: 045
  11. OXYGEN [Concomitant]
     Active Substance: OXYGEN
     Indication: Bronchitis chronic
     Dosage: UNK
     Route: 065

REACTIONS (25)
  - Drug interaction [Recovering/Resolving]
  - Hyperhidrosis [Recovered/Resolved]
  - Neuroleptic malignant syndrome [Recovering/Resolving]
  - Tremor [Recovered/Resolved]
  - Respiratory failure [Recovered/Resolved]
  - Respiratory tract infection [Recovered/Resolved]
  - Acute kidney injury [Recovered/Resolved]
  - Muscle rigidity [Recovered/Resolved]
  - Depressed level of consciousness [Recovered/Resolved]
  - Pyrexia [Recovered/Resolved]
  - Myoclonus [Recovered/Resolved]
  - Bradykinesia [Recovered/Resolved]
  - Vision blurred [Recovered/Resolved]
  - Memory impairment [Recovered/Resolved]
  - Executive dysfunction [Recovered/Resolved]
  - General physical health deterioration [Recovered/Resolved]
  - Apraxia [Recovered/Resolved]
  - Psychomotor hyperactivity [Recovered/Resolved]
  - Hallucination, visual [Recovered/Resolved]
  - Tachycardia [Recovered/Resolved]
  - Chills [Recovered/Resolved]
  - Gait disturbance [Recovered/Resolved]
  - Euphoric mood [Recovered/Resolved]
  - Product use in unapproved indication [Unknown]
  - Off label use [Unknown]
